FAERS Safety Report 8234478-2 (Version None)
Quarter: 2012Q1

REPORT INFORMATION
  Report Type: 
  Country: None (occurrence: None)
  Receive Date: 20120326
  Receipt Date: 20120313
  Transmission Date: 20120608
  Serious: Yes (Hospitalization)
  Sender: FDA-Public Use
  Company Number: NL-ROCHE-1009115

PATIENT
  Sex: Female

DRUGS (15)
  1. MEBEVERINE [Concomitant]
     Dates: start: 20110930
  2. ACETAMINOPHEN [Concomitant]
     Dates: start: 19920101
  3. HERCEPTIN [Suspect]
     Indication: BREAST CANCER METASTATIC
     Dosage: LAST DOSE: 21-10-2011
     Dates: start: 20110930
  4. RABEPRAZOLE SODIUM [Concomitant]
     Dates: start: 20110930
  5. DUSPATAL [Concomitant]
  6. AVASTIN [Suspect]
     Indication: BREAST CANCER METASTATIC
     Dosage: LAST DOSE 21-OCT-2011
     Dates: start: 20111001
  7. CODEINE [Concomitant]
     Dates: start: 20111021
  8. ALBUTEROL [Concomitant]
  9. TRAMADOL HCL [Concomitant]
     Dates: start: 20110930
  10. CLEMASTINE [Concomitant]
     Dates: start: 20111003
  11. PACLITAXEL [Suspect]
     Indication: BREAST CANCER METASTATIC
     Dosage: LAST DOSE 01/OCT/2011
     Route: 042
     Dates: start: 20111001
  12. TRIAMTEREN [Concomitant]
     Dosage: OSE REPORTED: 50/4
     Dates: start: 20110930
  13. POLYETHYLENE GLYCOL [Concomitant]
     Dates: start: 20110930
  14. LEVOTHYROXINE SODIUM [Concomitant]
     Dates: start: 20110930
  15. LEVOTHYROXINE SODIUM [Concomitant]

REACTIONS (4)
  - HYPERSENSITIVITY [None]
  - DYSPNOEA [None]
  - THROMBOPHLEBITIS [None]
  - CHEST DISCOMFORT [None]
